FAERS Safety Report 17023116 (Version 6)
Quarter: 2020Q2

REPORT INFORMATION
  Report Type: Report from Study
  Country: US (occurrence: US)
  Receive Date: 20191112
  Receipt Date: 20200610
  Transmission Date: 20200713
  Serious: No
  Sender: FDA-Public Use
  Company Number: NVSC2019US032876

PATIENT
  Age: 72 Year
  Sex: Male
  Weight: 117.93 kg

DRUGS (1)
  1. COSENTYX [Suspect]
     Active Substance: SECUKINUMAB
     Indication: PSORIASIS
     Dosage: 300 MG (ONCE WEEKLY FOR 5 WEEKS, THEN ONCE EVERY 4 WEEKS)
     Route: 058
     Dates: start: 20190919

REACTIONS (12)
  - Macule [Recovering/Resolving]
  - Inflammation [Recovering/Resolving]
  - Nasopharyngitis [Recovered/Resolved]
  - Sinusitis [Unknown]
  - Diarrhoea [Recovered/Resolved]
  - Psoriasis [Recovering/Resolving]
  - Bronchitis [Unknown]
  - Fatigue [Recovered/Resolved]
  - Rash macular [Recovering/Resolving]
  - Fungal infection [Unknown]
  - Conjunctivitis [Unknown]
  - Weight increased [Unknown]

NARRATIVE: CASE EVENT DATE: 20190919
